FAERS Safety Report 4327808-5 (Version None)
Quarter: 2004Q1

REPORT INFORMATION
  Report Type: 
  Country: None (occurrence: None)
  Receive Date: 20040325
  Receipt Date: 20040309
  Transmission Date: 20041129
  Serious: Yes (Life-Threatening)
  Sender: FDA-Public Use
  Company Number: AU-JNJFOC-20040304611

PATIENT
  Age: 77 Year
  Sex: Female

DRUGS (9)
  1. TRAMADOL HCL [Suspect]
     Dosage: 50 MG, 1 IN, ORAL
     Route: 048
     Dates: start: 20030613, end: 20030613
  2. CEPHAZOLIN SODIUM (CEFAZOLIN) [Concomitant]
  3. ASPIRIN [Concomitant]
  4. DICLOHEXAL (DICLOFENAC) [Concomitant]
  5. MORPHINE SULPHATE (MORPHINE SULFATE) [Concomitant]
  6. HEPARIN SODIUM [Concomitant]
  7. ACETAMINOPHEN [Concomitant]
  8. CALTRATE (CALCIUM CARBONATE) [Concomitant]
  9. POLARAMINE [Concomitant]

REACTIONS (3)
  - ANAPHYLACTIC REACTION [None]
  - CARDIAC ARREST [None]
  - COMA [None]
